FAERS Safety Report 8197006-6 (Version None)
Quarter: 2012Q1

REPORT INFORMATION
  Report Type: 
  Country: None (occurrence: None)
  Receive Date: 20120227
  Receipt Date: 20120102
  Transmission Date: 20120608
  Serious: Yes (Other)
  Sender: FDA-Public Use
  Company Number: 338558

PATIENT
  Age: 69 Year
  Sex: Male
  Weight: 106.8 kg

DRUGS (10)
  1. METFORMIN /00082702/ (METFORMIN HYDROCHLORIDE) [Concomitant]
  2. ASPIRIN [Concomitant]
  3. FLONASE (FLUTICASONE PROPIONATE), 0.05MG/INH [Concomitant]
  4. FISH OIL (FISH OIL) [Concomitant]
  5. VICTOZA [Suspect]
     Indication: TYPE 2 DIABETES MELLITUS
     Dosage: UNKNOWN, SUBCUTANEOUS 1.2 MG, QD
     Route: 058
     Dates: end: 20111025
  6. VICTOZA [Suspect]
     Indication: TYPE 2 DIABETES MELLITUS
     Dosage: UNKNOWN, SUBCUTANEOUS 1.2 MG, QD
     Route: 058
     Dates: start: 20100517
  7. ZYRTEC [Concomitant]
  8. HYDROCHLOROTHIAZIDE W/LISINOPRIL (HYDROCHLOROTHIAZIDE, LISINOPRIL) [Concomitant]
  9. VIT D3 (COLECALCIFEROL) [Concomitant]
  10. ZOSTAVAX (VARICELLA ZOSTER VACCINE) [Concomitant]

REACTIONS (1)
  - PANCREATITIS [None]
